FAERS Safety Report 11246828 (Version 1)
Quarter: 2015Q3

REPORT INFORMATION
  Report Type: Spontaneous
  Country: US (occurrence: None)
  Receive Date: 20150706
  Receipt Date: 20150706
  Transmission Date: 20151125
  Serious: Yes (Other)
  Sender: FDA-Public Use
  Company Number: 2015ST000128

PATIENT
  Age: 63 Year
  Sex: Female
  Weight: 83.9 kg

DRUGS (10)
  1. MAGNESIUM CITRATE. [Concomitant]
     Active Substance: MAGNESIUM CITRATE
  2. IMDUR [Concomitant]
     Active Substance: ISOSORBIDE MONONITRATE
  3. ATORVASTATIN [Concomitant]
     Active Substance: ATORVASTATIN
  4. DIOVAN [Concomitant]
     Active Substance: VALSARTAN
  5. METOPROLOL [Concomitant]
     Active Substance: METOPROLOL
  6. BIOTIN [Concomitant]
     Active Substance: BIOTIN
  7. CENTRUM SILVER (ASCORBIC ACID, BIOTIN, CALCIUM, CALCIUM PANTOTHENATE, CHLORINE, CHROMIUM, COLCELCACIFEROL, COPPER, CYANOCOBALAIN, FOLIC ACID, IODINE, IRON, MAGNESIUM, MANGANESE, MOLYBDENUM, NICKEL, NICOTINAMIDE, PHOSPHORUS, PHYTOMENADIONE, POTASSIUM, PYRIDOXINE HYDRICHLORIDE, RETINOL, RIBOFLAVIN, SELENIUM, SILOCON DIOXIDE, THIAMINE HYDROCHLORIDE, TOCOPHEROL, VANADIUM, ZINC) [Concomitant]
  8. GLUMETZA [Suspect]
     Active Substance: METFORMIN HYDROCHLORIDE
     Indication: DIABETES MELLITUS
     Route: 048
     Dates: start: 201501
  9. FOLIC ACID. [Concomitant]
     Active Substance: FOLIC ACID
  10. ECOTRIN [Concomitant]
     Active Substance: ASPIRIN

REACTIONS (1)
  - Cerebrovascular accident [None]

NARRATIVE: CASE EVENT DATE: 20150426
